FAERS Safety Report 12447506 (Version 1)
Quarter: 2016Q2

REPORT INFORMATION
  Report Type: Spontaneous
  Country: GB (occurrence: GB)
  Receive Date: 20160608
  Receipt Date: 20160608
  Transmission Date: 20160815
  Serious: Yes (Other)
  Sender: FDA-Public Use
  Company Number: GB-TEVA-664672ACC

PATIENT
  Age: 91 Year
  Sex: Female
  Weight: 45 kg

DRUGS (11)
  1. CIPROFLOXACIN. [Concomitant]
     Active Substance: CIPROFLOXACIN
     Dosage: 2 DOSAGE FORMS DAILY;
     Dates: start: 20160324, end: 20160327
  2. HYDROXOCOBALAMIN [Concomitant]
     Active Substance: HYDROXOCOBALAMIN
     Dates: start: 20150108
  3. XARELTO [Concomitant]
     Active Substance: RIVAROXABAN
     Dosage: 1 DOSAGE FORMS DAILY;
     Dates: start: 20160311
  4. SENNA [Concomitant]
     Active Substance: SENNA LEAF\SENNOSIDES\SENNOSIDES A AND B
     Dosage: 2 DOSAGE FORMS DAILY; AT NIGHT
     Dates: start: 20150108
  5. LACTULOSE. [Concomitant]
     Active Substance: LACTULOSE
     Dosage: 20 ML DAILY;
     Dates: start: 20150108
  6. NITROFURANTOIN. [Concomitant]
     Active Substance: NITROFURANTOIN
     Dosage: 4 DOSAGE FORMS DAILY;
     Dates: start: 20160520
  7. TRIMETHOPRIM. [Suspect]
     Active Substance: TRIMETHOPRIM
     Route: 048
     Dates: start: 20160520, end: 20160520
  8. ALENDRONIC ACID [Concomitant]
     Active Substance: ALENDRONIC ACID
     Dates: start: 20150327
  9. PARACETAMOL [Concomitant]
     Active Substance: ACETAMINOPHEN
     Indication: PAIN
     Dosage: TAKE 1 OR 2 4 TIMES A DAY
     Dates: start: 20150108
  10. COSOPT [Concomitant]
     Active Substance: DORZOLAMIDE HYDROCHLORIDE\TIMOLOL MALEATE
     Dosage: 2 GTT DAILY; BOTH EYES
     Dates: start: 20150108
  11. METFORMIN [Concomitant]
     Active Substance: METFORMIN HYDROCHLORIDE
     Dosage: 1 DOSAGE FORMS DAILY; IN THE MORNING
     Dates: start: 20150108

REACTIONS (4)
  - Chills [Recovering/Resolving]
  - Tremor [Unknown]
  - Malaise [Unknown]
  - Rash [Unknown]

NARRATIVE: CASE EVENT DATE: 20160520
